FAERS Safety Report 13776338 (Version 3)
Quarter: 2017Q3

REPORT INFORMATION
  Report Type: Spontaneous
  Country: PL (occurrence: PL)
  Receive Date: 20170720
  Receipt Date: 20170817
  Transmission Date: 20171127
  Serious: Yes (Death, Life-Threatening)
  Sender: FDA-Public Use
  Company Number: PL-GE HEALTHCARE LIFE SCIENCES-2017CSU002149

PATIENT

DRUGS (2)
  1. VISIPAQUE [Suspect]
     Active Substance: IODIXANOL
     Indication: OVARIAN CANCER METASTATIC
     Dosage: 65 ML, SINGLE
     Route: 042
     Dates: start: 20170706, end: 20170706
  2. ENCORTON                           /00044701/ [Concomitant]
     Active Substance: PREDNISONE
     Indication: PREMEDICATION
     Dosage: 60 MG (2X PER 30MG), UNK
     Route: 048
     Dates: start: 20170705, end: 20170706

REACTIONS (7)
  - Dyspnoea [Fatal]
  - Anaphylactic reaction [Fatal]
  - Confusional state [Fatal]
  - Vomiting [Fatal]
  - Cough [Fatal]
  - Circulatory collapse [Fatal]
  - Breath holding [Fatal]

NARRATIVE: CASE EVENT DATE: 20170706
